FAERS Safety Report 16315019 (Version 2)
Quarter: 2019Q2

REPORT INFORMATION
  Report Type: Spontaneous
  Country: US (occurrence: US)
  Receive Date: 20190515
  Receipt Date: 20190522
  Transmission Date: 20190711
  Serious: Yes (Hospitalization)
  Sender: FDA-Public Use
  Company Number: US-PFIZER INC-2019202683

PATIENT
  Age: 23 Year
  Sex: Female

DRUGS (3)
  1. CEFEPIME [Concomitant]
     Active Substance: CEFEPIME HYDROCHLORIDE
     Indication: ANTIBIOTIC PROPHYLAXIS
     Dosage: UNK, (CEFEPIME FOR 3 DAYS AFTER THE FEVERS HAD ALREADY STARTED)
  2. HEPARIN SODIUM. [Suspect]
     Active Substance: HEPARIN SODIUM
     Dosage: UNK
  3. VANCOMYCIN [Concomitant]
     Active Substance: VANCOMYCIN
     Indication: ANTIBIOTIC PROPHYLAXIS
     Dosage: UNK

REACTIONS (1)
  - Pyrexia [Recovered/Resolved]
